FAERS Safety Report 4735820-7 (Version None)
Quarter: 2005Q3

REPORT INFORMATION
  Report Type: 
  Country: None (occurrence: None)
  Receive Date: 20050802
  Receipt Date: 20050722
  Transmission Date: 20060218
  Serious: Yes (Other)
  Sender: FDA-Public Use
  Company Number: HQWYE437425JUL05

PATIENT
  Sex: Female

DRUGS (7)
  1. EFFEXOR XR [Suspect]
     Dosage: ORAL
     Route: 048
  2. TOPAMAX [Concomitant]
  3. SYNTHROID [Concomitant]
  4. XANAX [Concomitant]
  5. PROTONIX [Concomitant]
  6. GLUCOSAMINE (GLUCOSAMINE) [Concomitant]
  7. FIORICET [Concomitant]

REACTIONS (1)
  - ALVEOLITIS ALLERGIC [None]
